FAERS Safety Report 17014145 (Version 1)
Quarter: 2019Q4

REPORT INFORMATION
  Report Type: Spontaneous
  Country: US (occurrence: US)
  Receive Date: 20191111
  Receipt Date: 20191111
  Transmission Date: 20200122
  Serious: Yes (Death)
  Sender: FDA-Public Use
  Company Number: US-ROCHE-2460898

PATIENT
  Sex: Male

DRUGS (11)
  1. ATORVASTATIN [Concomitant]
     Active Substance: ATORVASTATIN
     Route: 065
  2. OXYCODONE AND ACETAMINOPHEN [Concomitant]
     Active Substance: ACETAMINOPHEN\OXYCODONE HYDROCHLORIDE
     Route: 065
  3. DORZOLAMIDE [Concomitant]
     Active Substance: DORZOLAMIDE
     Dosage: SOL 22.3-6.8
     Route: 065
  4. CALCIUM ACETATE. [Concomitant]
     Active Substance: CALCIUM ACETATE
     Route: 065
  5. LUCENTIS [Suspect]
     Active Substance: RANIBIZUMAB
     Indication: NEOVASCULAR AGE-RELATED MACULAR DEGENERATION
     Dosage: 0.5 MG 0.05 ML, RIGHT EYE
     Route: 050
  6. PREDNISOLONE. [Concomitant]
     Active Substance: PREDNISOLONE
     Route: 065
  7. AMLODIPINE [Concomitant]
     Active Substance: AMLODIPINE BESYLATE
     Route: 065
  8. LUCENTIS [Suspect]
     Active Substance: RANIBIZUMAB
     Indication: CHOROIDAL NEOVASCULARISATION
  9. DUREZOL [Concomitant]
     Active Substance: DIFLUPREDNATE
     Route: 065
  10. PRAVASTATIN. [Concomitant]
     Active Substance: PRAVASTATIN
     Route: 065
  11. SODIUM BICARBONATE. [Concomitant]
     Active Substance: SODIUM BICARBONATE
     Route: 065

REACTIONS (1)
  - Death [Fatal]
